FAERS Safety Report 23317740 (Version 2)
Quarter: 2024Q1

REPORT INFORMATION
  Report Type: Report from Study
  Country: US (occurrence: US)
  Receive Date: 20231219
  Receipt Date: 20240301
  Transmission Date: 20240410
  Serious: Yes (Other)
  Sender: FDA-Public Use
  Company Number: US-ABBVIE-5548097

PATIENT
  Age: 55 Year
  Sex: Male

DRUGS (1)
  1. SKYRIZI [Suspect]
     Active Substance: RISANKIZUMAB-RZAA
     Indication: Psoriasis
     Route: 058
     Dates: start: 20190101, end: 20231113

REACTIONS (4)
  - Knee arthroplasty [Unknown]
  - Blister [Unknown]
  - Dermatitis contact [Unknown]
  - Medical device site rash [Unknown]

NARRATIVE: CASE EVENT DATE: 20231117
